FAERS Safety Report 6337558-1 (Version None)
Quarter: 2009Q3

REPORT INFORMATION
  Report Type: 
  Country: None (occurrence: None)
  Receive Date: 20090901
  Receipt Date: 20090901
  Transmission Date: 20100115
  Serious: Yes (Other)
  Sender: FDA-Public Use
  Company Number: None

PATIENT
  Age: 50 Year
  Sex: Male
  Weight: 77.1115 kg

DRUGS (7)
  1. PROVIGIL [Suspect]
     Indication: SLEEP APNOEA SYNDROME
     Dosage: 200 MG DAILY P.O.
     Route: 048
     Dates: start: 20050815, end: 20081031
  2. PROVIGIL [Suspect]
     Indication: SOMNOLENCE
     Dosage: 200 MG DAILY P.O.
     Route: 048
     Dates: start: 20050815, end: 20081031
  3. PROVIGIL [Suspect]
     Indication: SLEEP APNOEA SYNDROME
     Dosage: 200 MG DAILY P.O.
     Route: 048
     Dates: start: 20090808
  4. PROVIGIL [Suspect]
     Indication: SOMNOLENCE
     Dosage: 200 MG DAILY P.O.
     Route: 048
     Dates: start: 20090808
  5. NORVIR [Concomitant]
  6. REYATAZ [Concomitant]
  7. TRUVADA [Concomitant]

REACTIONS (1)
  - PENILE EXFOLIATION [None]
